FAERS Safety Report 20133879 (Version 1)
Quarter: 2021Q4

REPORT INFORMATION
  Report Type: Report from Study
  Country: US (occurrence: US)
  Receive Date: 20211201
  Receipt Date: 20211201
  Transmission Date: 20220303
  Serious: No
  Sender: FDA-Public Use
  Company Number: US-Ipsen Biopharmaceuticals, Inc.-2021-29495

PATIENT
  Sex: Female

DRUGS (2)
  1. SOMATULINE DEPOT [Suspect]
     Active Substance: LANREOTIDE ACETATE
     Indication: Acromegaly
     Route: 058
     Dates: start: 201812
  2. SOMAVERT [Concomitant]
     Active Substance: PEGVISOMANT
     Dosage: 2 MONTHS AGO
     Dates: start: 2021

REACTIONS (2)
  - Fatigue [Recovering/Resolving]
  - Drug effect less than expected [Unknown]
